FAERS Safety Report 23158374 (Version 1)
Quarter: 2023Q4

REPORT INFORMATION
  Report Type: Spontaneous
  Country: US (occurrence: US)
  Receive Date: 20231108
  Receipt Date: 20231108
  Transmission Date: 20240110
  Serious: No
  Sender: FDA-Public Use
  Company Number: US-AMNEAL PHARMACEUTICALS-2022-AMRX-03369

PATIENT
  Sex: Female
  Weight: 59 kg

DRUGS (1)
  1. ISOTRETINOIN [Suspect]
     Active Substance: ISOTRETINOIN
     Indication: Product used for unknown indication
     Dosage: MONTH 1: ISO 30MG 1 PO WITH DINNER (900MG). MONTH 2: ISO 30MG 2 PO WITH DINNER (1800MG). MONTH 3: IS
     Route: 048

REACTIONS (1)
  - Epistaxis [Unknown]
